FAERS Safety Report 9276590 (Version 2)
Quarter: 2013Q2

REPORT INFORMATION
  Report Type: Spontaneous
  Country: US (occurrence: US)
  Receive Date: 20130507
  Receipt Date: 20130517
  Transmission Date: 20140414
  Serious: Yes (Hospitalization)
  Sender: FDA-Public Use
  Company Number: US-GILEAD-2012-0062887

PATIENT
  Sex: Male

DRUGS (3)
  1. LETAIRIS [Suspect]
     Indication: PULMONARY HYPERTENSION
     Dosage: 10 MG, QD
     Route: 048
     Dates: start: 20110830
  2. LETAIRIS [Suspect]
     Indication: EXPOSURE TO TOXIC AGENT
  3. ADCIRCA [Concomitant]

REACTIONS (3)
  - Nephrotic syndrome [Unknown]
  - Renal disorder [Unknown]
  - Fluid retention [Unknown]
